FAERS Safety Report 8879475 (Version 5)
Quarter: 2014Q1

REPORT INFORMATION
  Report Type: Spontaneous
  Country: BR (occurrence: BR)
  Receive Date: 20121101
  Receipt Date: 20140109
  Transmission Date: 20141002
  Serious: Yes (Other)
  Sender: FDA-Public Use
  Company Number: BR-AMGEN-BRASP2012069091

PATIENT
  Age: 45 Year
  Sex: Female
  Weight: 60 kg

DRUGS (19)
  1. ENBREL [Suspect]
     Indication: ANKYLOSING SPONDYLITIS
     Dosage: 50 MG, ONCE WEEKLY
     Route: 058
     Dates: start: 201202, end: 201304
  2. ENBREL [Suspect]
     Dosage: UNK
     Route: 065
     Dates: start: 2013, end: 2013
  3. ENBREL [Suspect]
     Dosage: UNK
     Route: 065
  4. OXCARBAZEPINE [Concomitant]
     Indication: NERVOUS SYSTEM DISORDER
     Dosage: 1 TABLET (400 MG), 2X/DAY
  5. OXCARBAZEPINE [Concomitant]
     Indication: EPILEPSY
  6. PHENYTOIN [Concomitant]
     Indication: NERVOUS SYSTEM DISORDER
     Dosage: 1 TABLET (80 MG), 1X/DAY
  7. PHENYTOIN [Concomitant]
     Indication: EPILEPSY
  8. ATENOLOL [Concomitant]
     Indication: HYPERTENSION
     Dosage: 25 MG, 1X/DAY
  9. GLIFAGE [Concomitant]
     Indication: DIABETES MELLITUS
     Dosage: 500 MG, UNK
  10. DIACEREIN [Concomitant]
     Indication: ARTHRITIS
     Dosage: UNK
  11. NORTRIPTYLINE [Concomitant]
     Indication: FIBROMYALGIA
     Dosage: UNK
  12. KETOPROFEN [Concomitant]
     Indication: SPONDYLITIS
     Dosage: UNK
  13. OMEPRAZOL                          /00661201/ [Concomitant]
     Indication: GASTROINTESTINAL DISORDER
     Dosage: UNK
  14. DOMPERIDONE [Concomitant]
     Indication: GASTRIC DISORDER
     Dosage: UNK
  15. METFORMIN HYDROCHLORIDE [Concomitant]
     Indication: DIABETES MELLITUS
     Dosage: 500 MG, UNK
  16. TEGRETOL [Concomitant]
     Indication: CONVULSION
     Dosage: UNK
  17. HIDANTAL [Concomitant]
     Indication: CONVULSION
     Dosage: UNK
  18. METHIONINE [Concomitant]
     Indication: LIVER DISORDER
     Dosage: UNK
  19. METHIONINE [Concomitant]
     Indication: GASTRIC DISORDER
     Dosage: UNK

REACTIONS (21)
  - Decreased appetite [Unknown]
  - Product quality issue [Unknown]
  - Oropharyngeal pain [Unknown]
  - Wheezing [Unknown]
  - Headache [Unknown]
  - Fatigue [Unknown]
  - Pruritus [Unknown]
  - Blood pressure abnormal [Unknown]
  - Syncope [Unknown]
  - Weight decreased [Unknown]
  - Pain [Recovered/Resolved]
  - Feeling abnormal [Unknown]
  - Erythema [Unknown]
  - Localised infection [Unknown]
  - Sinusitis [Unknown]
  - Lung infection [Unknown]
  - Urinary tract infection [Recovered/Resolved]
  - Injection site discomfort [Unknown]
  - Injection site pain [Unknown]
  - Injection site erythema [Unknown]
  - Injection site pruritus [Unknown]
